FAERS Safety Report 9023755 (Version 1)
Quarter: 2013Q1

REPORT INFORMATION
  Report Type: Spontaneous
  Country: GB (occurrence: GB)
  Receive Date: 20130121
  Receipt Date: 20130121
  Transmission Date: 20140127
  Serious: Yes (Other)
  Sender: FDA-Public Use
  Company Number: GB-JNJFOC-20130105048

PATIENT
  Age: 25 Year
  Sex: Female
  Weight: 57.15 kg

DRUGS (1)
  1. MICRONOR [Suspect]
     Indication: CONTRACEPTION
     Route: 048
     Dates: start: 20121002, end: 20121006

REACTIONS (4)
  - Dry skin [Recovered/Resolved with Sequelae]
  - Rash pruritic [Recovered/Resolved with Sequelae]
  - Skin warm [Recovered/Resolved with Sequelae]
  - Eye swelling [Recovered/Resolved with Sequelae]
